FAERS Safety Report 4863968-5 (Version None)
Quarter: 2005Q4

REPORT INFORMATION
  Report Type: 
  Country: None (occurrence: None)
  Receive Date: 20051219
  Receipt Date: 20051213
  Transmission Date: 20060501
  Serious: Yes (Life-Threatening, Hospitalization)
  Sender: FDA-Public Use
  Company Number: HQWYE029615DEC05

PATIENT
  Age: 74 Year
  Sex: Male

DRUGS (5)
  1. TAZONAM (PIPERACILLIN / TAZOBACTAM, INJECTION) [Suspect]
     Indication: PNEUMONIA
     Dosage: 4.5 GRAMS FOUR TIMES DAILY
     Route: 042
     Dates: start: 20040220, end: 20040228
  2. BIKLIN (AMIKACIN SULFATE) [Concomitant]
  3. PANTOLOC (PANTOPRAZOLE) [Concomitant]
  4. DIPRIVAN [Concomitant]
  5. SUFENTANIL CITRATE [Concomitant]

REACTIONS (2)
  - DRUG INEFFECTIVE [None]
  - LUNG INFECTION PSEUDOMONAL [None]
